FAERS Safety Report 7636902-2 (Version None)
Quarter: 2011Q3

REPORT INFORMATION
  Report Type: 
  Country: None (occurrence: None)
  Receive Date: 20110720
  Receipt Date: 20110511
  Transmission Date: 20111222
  Serious: Yes (Life-Threatening, Hospitalization)
  Sender: FDA-Public Use
  Company Number: WIL-006-11-GB

PATIENT
  Age: 37 Year
  Sex: Female

DRUGS (1)
  1. WILATE [Suspect]
     Indication: VON WILLEBRAND'S DISEASE
     Dosage: 3600 IU - 1 X 1 / AS NECESSARY INTRAVENOUS (NOT OTHERWISE SPECIFIED)
     Route: 042
     Dates: start: 20110704, end: 20110704

REACTIONS (3)
  - HYPERVENTILATION [None]
  - FLUSHING [None]
  - DYSPNOEA [None]
